FAERS Safety Report 4854482-1 (Version None)
Quarter: 2005Q4

REPORT INFORMATION
  Report Type: 
  Country: None (occurrence: None)
  Receive Date: 20051213
  Receipt Date: 20051130
  Transmission Date: 20060501
  Serious: Yes (Hospitalization)
  Sender: FDA-Public Use
  Company Number: ZA200512000236

PATIENT
  Age: 25 Year
  Sex: Male

DRUGS (1)
  1. ZYPREXA [Suspect]
     Dosage: INTRAMUSCULAR
     Route: 030
     Dates: start: 20050101

REACTIONS (1)
  - HYPERTHERMIA MALIGNANT [None]
